FAERS Safety Report 21255620 (Version 3)
Quarter: 2022Q3

REPORT INFORMATION
  Report Type: Spontaneous
  Country: US (occurrence: US)
  Receive Date: 20220825
  Receipt Date: 20220915
  Transmission Date: 20221027
  Serious: Yes (Hospitalization)
  Sender: FDA-Public Use
  Company Number: US-ALLERGAN-2227692US

PATIENT
  Sex: Male
  Weight: 95.254 kg

DRUGS (2)
  1. DALVANCE [Suspect]
     Active Substance: DALBAVANCIN
     Indication: Osteomyelitis
     Dosage: 1000 MG, SINGLE
     Route: 042
     Dates: start: 20200901, end: 20200901
  2. VITAMINS NOS [Concomitant]
     Active Substance: VITAMINS
     Dosage: UNK

REACTIONS (15)
  - Peripheral swelling [Recovering/Resolving]
  - Peripheral venous disease [Recovering/Resolving]
  - Erythema [Recovering/Resolving]
  - Skin discolouration [Recovering/Resolving]
  - Skin laceration [Recovered/Resolved]
  - Skin disorder [Recovered/Resolved]
  - Pain in extremity [Recovering/Resolving]
  - Pain [Recovering/Resolving]
  - Stress [Not Recovered/Not Resolved]
  - Migraine [Not Recovered/Not Resolved]
  - Hypotonia [Not Recovered/Not Resolved]
  - Skin wrinkling [Not Recovered/Not Resolved]
  - Gait inability [Not Recovered/Not Resolved]
  - Off label use [Unknown]
  - Hypersensitivity [Recovering/Resolving]

NARRATIVE: CASE EVENT DATE: 20200901
